FAERS Safety Report 15099598 (Version 4)
Quarter: 2018Q4

REPORT INFORMATION
  Report Type: Report from Study
  Country: US (occurrence: US)
  Receive Date: 20180702
  Receipt Date: 20181009
  Transmission Date: 20190204
  Serious: Yes (Death, Hospitalization, Other)
  Sender: FDA-Public Use
  Company Number: US-SEATTLE GENETICS-2018SGN01483

PATIENT
  Age: 87 Year
  Sex: Male

DRUGS (1)
  1. BRENTUXIMAB VEDOTIN [Suspect]
     Active Substance: BRENTUXIMAB VEDOTIN
     Indication: MYCOSIS FUNGOIDES STAGE II
     Dosage: UNK
     Route: 065
     Dates: start: 20180612

REACTIONS (17)
  - Cognitive disorder [Not Recovered/Not Resolved]
  - Renal failure [Unknown]
  - Constipation [Unknown]
  - Off label use [Unknown]
  - Dehydration [Unknown]
  - Urinary tract infection [Unknown]
  - Leukocytosis [Unknown]
  - Cardiomegaly [Unknown]
  - Myocardial infarction [Unknown]
  - Dysphagia [Unknown]
  - Oxygen saturation decreased [Unknown]
  - Decreased appetite [Unknown]
  - Death [Fatal]
  - Hallucination [Unknown]
  - Hypotension [Unknown]
  - Encephalopathy [Unknown]
  - Pleural effusion [Unknown]

NARRATIVE: CASE EVENT DATE: 20180620
